FAERS Safety Report 19377646 (Version 5)
Quarter: 2021Q3

REPORT INFORMATION
  Report Type: Report from Study
  Country: BR (occurrence: BR)
  Receive Date: 20210604
  Receipt Date: 20210930
  Transmission Date: 20211014
  Serious: Yes (Hospitalization, Other)
  Sender: FDA-Public Use
  Company Number: BR-PFIZER INC-2021630115

PATIENT
  Age: 81 Year
  Sex: Male
  Weight: 68.65 kg

DRUGS (3)
  1. DEXAMETHASONE. [Concomitant]
     Active Substance: DEXAMETHASONE
     Indication: KERATOCONUS
     Dosage: 10 MG, 1X/DAY
     Route: 061
     Dates: start: 20201111
  2. ENCORAFENIB [Suspect]
     Active Substance: ENCORAFENIB
     Indication: MALIGNANT MELANOMA
     Dosage: 100 MG, DAILY
     Route: 048
     Dates: start: 20150904
  3. BINIMETINIB [Suspect]
     Active Substance: BINIMETINIB
     Indication: MALIGNANT MELANOMA
     Dosage: 15 MG, 2X/DAY
     Route: 048
     Dates: start: 20150904

REACTIONS (1)
  - Vision blurred [Recovered/Resolved]

NARRATIVE: CASE EVENT DATE: 20210526
